FAERS Safety Report 5328668-6 (Version None)
Quarter: 2007Q2

REPORT INFORMATION
  Report Type: 
  Country: None (occurrence: None)
  Receive Date: 20070518
  Receipt Date: 20070515
  Transmission Date: 20071010
  Serious: Yes (Other)
  Sender: FDA-Public Use
  Company Number: A0649465A

PATIENT
  Age: 23 Year
  Sex: Male
  Weight: 76.8 kg

DRUGS (2)
  1. EPZICOM [Suspect]
     Indication: HIV INFECTION
     Route: 048
  2. SEPTRIN [Concomitant]

REACTIONS (4)
  - CHEST PAIN [None]
  - DRUG HYPERSENSITIVITY [None]
  - PYREXIA [None]
  - RASH [None]
